FAERS Safety Report 8230803-7 (Version None)
Quarter: 2012Q1

REPORT INFORMATION
  Report Type: 
  Country: None (occurrence: None)
  Receive Date: 20120323
  Receipt Date: 20120321
  Transmission Date: 20120608
  Serious: Yes (Other)
  Sender: FDA-Public Use
  Company Number: US-PFIZER INC-2012073692

PATIENT
  Sex: Female

DRUGS (15)
  1. TRICOR [Concomitant]
     Dosage: 145 MG, DAILY
     Route: 048
  2. PROVENTIL GENTLEHALER [Concomitant]
     Dosage: 90 UG, 4X/DAY (INHALE 2 PUFFS INTO THE LUNGS 4 (FOUR) TIMES DAILY)
  3. DULERA ORAL INHALATION [Concomitant]
     Dosage: 200-5 MCG, (INHALE 2 PUFFS INTO THE LUNGS 2 (TWO) TIMES DAILY)
  4. KLONOPIN [Concomitant]
     Dosage: UNK
     Route: 048
  5. NEXIUM [Concomitant]
     Dosage: 10 MG, (EVERY MORNING BEFORE BREAKFAST)
     Route: 048
  6. JANUMET [Concomitant]
     Dosage: 50-500 MG, 2X/DAY
     Route: 048
  7. SEROQUEL [Concomitant]
     Dosage: 400 MG, NIGHTLY
     Route: 048
  8. VITAMIN D [Concomitant]
     Dosage: 5000 UNIT, DAILY
     Route: 048
  9. NORVASC [Suspect]
     Dosage: 10 MG, DAILY (QAM)
     Route: 048
  10. BISACODYL [Concomitant]
     Dosage: 5 MG, UNK
     Route: 048
  11. VITAMIN B-12 [Concomitant]
     Dosage: 2500 UG, 1 TABLET UNDER THE TONGUE DAILY
     Route: 060
  12. ACCURETIC [Suspect]
     Dosage: 10-12.5 MG, DAILY
     Route: 048
  13. SPIRIVA [Suspect]
     Dosage: 18 UG, (INHALE 1 CAPSULE IN TO THE LUNGS DAILY)
  14. PRAVACHOL [Concomitant]
     Dosage: 40 MG, DAILY
     Route: 048
  15. PSYLLIUM [Concomitant]
     Dosage: UNK, 2X/DAY
     Route: 048

REACTIONS (8)
  - BIPOLAR I DISORDER [None]
  - BLOOD CHOLESTEROL INCREASED [None]
  - ANXIETY DISORDER [None]
  - CHRONIC OBSTRUCTIVE PULMONARY DISEASE [None]
  - DIABETES MELLITUS INADEQUATE CONTROL [None]
  - ESSENTIAL HYPERTENSION [None]
  - CHEST PAIN [None]
  - CONSTIPATION [None]
